FAERS Safety Report 4620427-2 (Version None)
Quarter: 2005Q1

REPORT INFORMATION
  Report Type: 
  Country: None (occurrence: None)
  Receive Date: 20050324
  Receipt Date: 20050315
  Transmission Date: 20050727
  Serious: Yes (Hospitalization, Other)
  Sender: FDA-Public Use
  Company Number: HQWYE143715MAR05

PATIENT
  Age: 81 Year
  Sex: Male

DRUGS (3)
  1. CORDARONE [Suspect]
     Dosage: SEE IMAGE
     Route: 048
     Dates: start: 20040327, end: 20040327
  2. CORDARONE [Suspect]
     Dosage: SEE IMAGE
     Route: 048
     Dates: start: 20040328, end: 20040406
  3. CORDARONE [Suspect]
     Dosage: SEE IMAGE
     Route: 048
     Dates: start: 20040407, end: 20040901

REACTIONS (12)
  - ALVEOLITIS ALLERGIC [None]
  - ANOREXIA [None]
  - ASTHENIA [None]
  - ATRIAL FIBRILLATION [None]
  - BALANCE DISORDER [None]
  - CYTOLYTIC HEPATITIS [None]
  - GENERAL PHYSICAL CONDITION ABNORMAL [None]
  - HYPERTHYROIDISM [None]
  - HYPONATRAEMIA [None]
  - INFECTION [None]
  - PNEUMONITIS [None]
  - VERTIGO [None]
